FAERS Safety Report 19271257 (Version 2)
Quarter: 2021Q3

REPORT INFORMATION
  Report Type: Spontaneous
  Country: NL (occurrence: IT)
  Receive Date: 20210518
  Receipt Date: 20210810
  Transmission Date: 20211014
  Serious: Yes (Death, Hospitalization, Other)
  Sender: FDA-Public Use
  Company Number: IT-FRESENIUS KABI-FK202104915

PATIENT
  Age: 58 Year
  Sex: Male

DRUGS (2)
  1. PACLITAXEL (MANUFACTURER UNKNOWN) [Suspect]
     Active Substance: PACLITAXEL
     Indication: GASTRIC CANCER
     Dosage: UNK UNK, UNKNOWN
     Route: 065
     Dates: start: 201811
  2. RAMUCIRUMAB [Suspect]
     Active Substance: RAMUCIRUMAB
     Indication: GASTRIC CANCER
     Dosage: UNK UNK, UNKNOWN
     Route: 065
     Dates: start: 201811

REACTIONS (10)
  - General physical health deterioration [Unknown]
  - Proteinuria [Unknown]
  - Urosepsis [Recovered/Resolved]
  - Alanine aminotransferase increased [Unknown]
  - Death [Fatal]
  - Acute kidney injury [Recovered/Resolved]
  - Peripheral sensory neuropathy [Unknown]
  - Neutropenia [Unknown]
  - Diarrhoea [Unknown]
  - Drug ineffective [Unknown]
